FAERS Safety Report 4497933-7 (Version None)
Quarter: 2004Q4

REPORT INFORMATION
  Report Type: 
  Country: None (occurrence: None)
  Receive Date: 20041104
  Receipt Date: 20041022
  Transmission Date: 20050328
  Serious: Yes (Hospitalization, Other)
  Sender: FDA-Public Use
  Company Number: 2004076910

PATIENT
  Age: 72 Year
  Sex: Female

DRUGS (10)
  1. SULPERAZON (CEFOPERAZONE, SULBACTAM) [Suspect]
     Indication: ILL-DEFINED DISORDER
     Dosage: 1 GRAM (1 GRAM, 1 IN 1 D), INTRAVENOUS
     Route: 042
     Dates: start: 20040928, end: 20040928
  2. FAMOTIDINE [Suspect]
     Indication: ILL-DEFINED DISORDER
     Dosage: 10 MG (10 MG, 1 IN 1 D), INTRAVENOUS
     Route: 042
     Dates: start: 20040928, end: 20040928
  3. ALPROSTADIL [Suspect]
     Indication: ILL-DEFINED DISORDER
     Dosage: 5 MG (5 MG, 1 IN 1 D), INTRAVENOUS
     Route: 042
     Dates: start: 20040928, end: 20040930
  4. FUROSEMIDE [Concomitant]
  5. SODIUM BICARBONATE IN PLASTIC CONTAINER [Concomitant]
  6. ASPIRIN [Concomitant]
  7. DISOPYRAMIDE PHOSPHATE (DISOPYRAMIDE PHOSPHATE) [Concomitant]
  8. ALLOPURINOL [Concomitant]
  9. LOSARTAN POTASSIUM [Concomitant]
  10. FEXOFENADINE HYDROCHLORIDE [Concomitant]

REACTIONS (6)
  - EATING DISORDER [None]
  - EOSINOPHIL PERCENTAGE INCREASED [None]
  - HAEMODIALYSIS [None]
  - HEPATITIS ACUTE [None]
  - MALAISE [None]
  - WHITE BLOOD CELL COUNT INCREASED [None]
